FAERS Safety Report 16637860 (Version 1)
Quarter: 2019Q3

REPORT INFORMATION
  Report Type: Spontaneous
  Country: CN (occurrence: CN)
  Receive Date: 20190726
  Receipt Date: 20190726
  Transmission Date: 20191004
  Serious: Yes (Hospitalization)
  Sender: FDA-Public Use
  Company Number: CN-ELI_LILLY_AND_COMPANY-CN201907012244

PATIENT
  Age: 60 Year
  Sex: Male
  Weight: 72.5 kg

DRUGS (2)
  1. ACARBOSE. [Concomitant]
     Active Substance: ACARBOSE
     Dosage: UNK, UNKNOWN
     Route: 065
  2. HUMALOG MIX50/50 [Suspect]
     Active Substance: INSULIN LISPRO
     Indication: DIABETES MELLITUS
     Dosage: 20 INTERNATIONAL UNIT, BID
     Route: 058
     Dates: start: 2017

REACTIONS (1)
  - Hepatic cirrhosis [Unknown]
